FAERS Safety Report 10560055 (Version 1)
Quarter: 2014Q4

REPORT INFORMATION
  Report Type: Report from Study
  Country: BR (occurrence: BR)
  Receive Date: 20141103
  Receipt Date: 20141103
  Transmission Date: 20150529
  Serious: Yes (Other)
  Sender: FDA-Public Use
  Company Number: BR-US-EMD SERONO, INC.-7330211

PATIENT
  Sex: Female

DRUGS (7)
  1. PROPRANOLOL [Concomitant]
     Active Substance: PROPRANOLOL\PROPRANOLOL HYDROCHLORIDE
     Indication: PRODUCT USED FOR UNKNOWN INDICATION
  2. VITAMIN D                          /00107901/ [Concomitant]
     Active Substance: ERGOCALCIFEROL
     Indication: PRODUCT USED FOR UNKNOWN INDICATION
  3. REBIF [Suspect]
     Active Substance: INTERFERON BETA-1A
     Indication: MULTIPLE SCLEROSIS
     Dates: start: 20020515, end: 20041201
  4. REBIF [Suspect]
     Active Substance: INTERFERON BETA-1A
     Dates: start: 20050701, end: 20080428
  5. REBIF [Suspect]
     Active Substance: INTERFERON BETA-1A
     Dates: start: 20091014
  6. RIVOTRIL [Concomitant]
     Active Substance: CLONAZEPAM
     Indication: PRODUCT USED FOR UNKNOWN INDICATION
  7. REBIF [Suspect]
     Active Substance: INTERFERON BETA-1A
     Dates: start: 20080701, end: 20090914

REACTIONS (15)
  - Injection site mass [Not Recovered/Not Resolved]
  - Injection site reaction [Not Recovered/Not Resolved]
  - Abdominal distension [Not Recovered/Not Resolved]
  - Flatulence [Not Recovered/Not Resolved]
  - Constipation [Not Recovered/Not Resolved]
  - Injection site necrosis [Not Recovered/Not Resolved]
  - Liver induration [Not Recovered/Not Resolved]
  - Injection site induration [Not Recovered/Not Resolved]
  - Lack of injection site rotation [Not Recovered/Not Resolved]
  - Gastric disorder [Not Recovered/Not Resolved]
  - Liver disorder [Not Recovered/Not Resolved]
  - Decreased appetite [Not Recovered/Not Resolved]
  - Abdominal pain [Not Recovered/Not Resolved]
  - Injection site atrophy [Not Recovered/Not Resolved]
  - Inflammation [Not Recovered/Not Resolved]
